FAERS Safety Report 4277805-3 (Version None)
Quarter: 2004Q1

REPORT INFORMATION
  Report Type: 
  Country: None (occurrence: None)
  Receive Date: 20040121
  Receipt Date: 20040105
  Transmission Date: 20041129
  Serious: Yes (Hospitalization)
  Sender: FDA-Public Use
  Company Number: SP-2004-001471

PATIENT
  Age: 62 Year
  Sex: Female

DRUGS (1)
  1. VOTUM 20 [Suspect]
     Indication: ESSENTIAL HYPERTENSION
     Dosage: 20 MG QD; PO
     Route: 048
     Dates: start: 20031111, end: 20031115

REACTIONS (2)
  - CIRCULATORY COLLAPSE [None]
  - NASOPHARYNGITIS [None]
